FAERS Safety Report 4686452-0 (Version None)
Quarter: 2005Q2

REPORT INFORMATION
  Report Type: 
  Country: None (occurrence: None)
  Receive Date: 20050606
  Receipt Date: 20050525
  Transmission Date: 20051028
  Serious: No
  Sender: FDA-Public Use
  Company Number: 2005082002

PATIENT
  Age: 64 Year
  Sex: Male

DRUGS (1)
  1. CABERGOLINE [Suspect]
     Indication: PARKINSON'S DISEASE
     Dosage: 4 MG ( 2 MG, 2 IN 1 D), ORAL
     Route: 048
     Dates: start: 20040401, end: 20050501

REACTIONS (2)
  - PLEURAL EFFUSION [None]
  - PNEUMONIA [None]
